FAERS Safety Report 18084933 (Version 1)
Quarter: 2020Q3

REPORT INFORMATION
  Report Type: Spontaneous
  Country: US (occurrence: US)
  Receive Date: 20200728
  Receipt Date: 20200728
  Transmission Date: 20201103
  Serious: Yes (Hospitalization)
  Sender: FDA-Public Use
  Company Number: None

PATIENT
  Age: 66 Year
  Sex: Female
  Weight: 75.3 kg

DRUGS (2)
  1. VENCLEXTA [Suspect]
     Active Substance: VENETOCLAX
     Indication: ACUTE MYELOID LEUKAEMIA
     Route: 048
     Dates: start: 20200608, end: 20200707
  2. AZACITIDINE. [Concomitant]
     Active Substance: AZACITIDINE
     Dates: start: 20200608, end: 20200615

REACTIONS (2)
  - Escherichia bacteraemia [None]
  - Febrile neutropenia [None]

NARRATIVE: CASE EVENT DATE: 20200707
